FAERS Safety Report 5557816-8 (Version None)
Quarter: 2007Q4

REPORT INFORMATION
  Report Type: 
  Country: None (occurrence: None)
  Receive Date: 20071214
  Receipt Date: 20071206
  Transmission Date: 20080405
  Serious: Yes (Hospitalization)
  Sender: FDA-Public Use
  Company Number: US-ASTRAZENECA-2007UW27784

PATIENT
  Age: 17 Year
  Sex: Female

DRUGS (2)
  1. SEROQUEL [Suspect]
     Indication: BIPOLAR DISORDER
     Route: 048
  2. ORAL CONTRACEPTIVE [Concomitant]

REACTIONS (3)
  - CHEST PAIN [None]
  - HAEMOPTYSIS [None]
  - PULMONARY EMBOLISM [None]
